FAERS Safety Report 4680001-9 (Version None)
Quarter: 2005Q2

REPORT INFORMATION
  Report Type: 
  Country: None (occurrence: None)
  Receive Date: 20050602
  Receipt Date: 20050524
  Transmission Date: 20051028
  Serious: Yes (Death)
  Sender: FDA-Public Use
  Company Number: S05-USA-00886-01

PATIENT
  Age: 28 Year
  Sex: Male
  Weight: 77.7 kg

DRUGS (11)
  1. COMBIVIR [Suspect]
     Indication: HIV INFECTION
     Route: 048
     Dates: end: 20040804
  2. CELEXA [Suspect]
     Indication: DRUG USE FOR UNKNOWN INDICATION
     Dosage: 40MG PER DAY
     Route: 048
     Dates: end: 20040804
  3. VIRACEPT [Suspect]
     Indication: HIV INFECTION
     Dosage: 1250MG TWICE PER DAY
     Route: 048
     Dates: end: 20040804
  4. DEPAKOTE [Concomitant]
     Route: 065
     Dates: end: 20040804
  5. LIPITOR [Concomitant]
     Route: 065
     Dates: end: 20040804
  6. ATIVAN [Concomitant]
     Route: 065
     Dates: end: 20040804
  7. ZYPREXA [Concomitant]
     Route: 065
     Dates: end: 20040804
  8. NIZORAL [Concomitant]
     Route: 061
     Dates: end: 20040804
  9. BENADRYL [Concomitant]
     Dosage: 50MG PER DAY
     Route: 065
     Dates: end: 20040804
  10. TYLENOL (CAPLET) [Concomitant]
     Route: 065
     Dates: end: 20040804
  11. MULTI-VITAMINS [Concomitant]
     Route: 065
     Dates: end: 20040804

REACTIONS (6)
  - ACCIDENTAL OVERDOSE [None]
  - BLOOD ALCOHOL INCREASED [None]
  - DRUG INTERACTION [None]
  - DRUG TOXICITY [None]
  - LOSS OF CONSCIOUSNESS [None]
  - UPPER RESPIRATORY TRACT INFECTION [None]
